FAERS Safety Report 9035923 (Version 1)
Quarter: 2013Q1

REPORT INFORMATION
  Report Type: Report from Study
  Country: US (occurrence: US)
  Receive Date: 20130129
  Receipt Date: 20130129
  Transmission Date: 20140127
  Serious: No
  Sender: FDA-Public Use
  Company Number: US-ABBOTT-12P-163-0917709-00

PATIENT
  Age: 57 Year
  Sex: Female

DRUGS (10)
  1. HUMIRA 40 MG/0.8 ML PEN [Suspect]
     Indication: PSORIATIC ARTHROPATHY
     Dates: start: 201111
  2. METHOTREXATE [Suspect]
     Indication: PRODUCT USED FOR UNKNOWN INDICATION
     Route: 050
  3. PIROXICAM [Concomitant]
     Indication: PAIN
     Dosage: 20 MG DAILY
  4. OMEPRAZOLE [Concomitant]
     Indication: PROPHYLAXIS AGAINST GASTROINTESTINAL ULCER
     Dosage: 20 MG DAILY
  5. ZOLOFT [Concomitant]
     Indication: DEPRESSION
     Dosage: 100 MG DAILY
  6. FOLIC ACID [Concomitant]
     Indication: PRODUCT USED FOR UNKNOWN INDICATION
  7. AMBIEN [Concomitant]
     Indication: INSOMNIA
     Dosage: AT BEDTIME
  8. DIAZEPAM [Concomitant]
     Indication: PRURITUS
     Dosage: 5 MG DAILY
  9. DIAZEPAM [Concomitant]
     Indication: PSORIATIC ARTHROPATHY
  10. PROMETHAZINE [Concomitant]
     Indication: NAUSEA

REACTIONS (2)
  - Urticaria [Not Recovered/Not Resolved]
  - Hepatic enzyme increased [Not Recovered/Not Resolved]
